FAERS Safety Report 5809591-7 (Version None)
Quarter: 2008Q3

REPORT INFORMATION
  Report Type: 
  Country: None (occurrence: None)
  Receive Date: 20080709
  Receipt Date: 20080625
  Transmission Date: 20090109
  Serious: Yes (Death)
  Sender: FDA-Public Use
  Company Number: 2008US001665

PATIENT
  Age: 20 Year
  Sex: Female

DRUGS (5)
  1. PROGRAF [Suspect]
     Indication: SMALL INTESTINE TRANSPLANT
     Dosage: 4 MG, UID/QD, ORAL
     Route: 048
  2. MYCOPHENOLATE      (MYCOPHENOLATE MOFETIL) [Concomitant]
  3. LOPERAMIDE [Concomitant]
  4. MAGNESIUM      (MAGNESIUM) [Concomitant]
  5. CALCIUM          (CALCIUM) [Concomitant]

REACTIONS (1)
  - INTESTINE TRANSPLANT REJECTION [None]
